FAERS Safety Report 9676358 (Version 1)
Quarter: 2013Q4

REPORT INFORMATION
  Report Type: Spontaneous
  Country: US (occurrence: US)
  Receive Date: 20131107
  Receipt Date: 20131107
  Transmission Date: 20140711
  Serious: No
  Sender: FDA-Public Use
  Company Number: US-TEVA-443509USA

PATIENT
  Age: 27 Year
  Sex: Female
  Weight: 62.65 kg

DRUGS (4)
  1. PLAN B ONE-STEP [Suspect]
     Indication: POST COITAL CONTRACEPTION
     Dosage: 1.5 MILLIGRAM DAILY;
     Route: 048
     Dates: start: 201202, end: 201202
  2. METFORMIN [Concomitant]
     Indication: POLYCYSTIC OVARIES
  3. SPIRONOLACTONE [Concomitant]
     Indication: POLYCYSTIC OVARIES
  4. WELLBUTRIN [Concomitant]
     Indication: POLYCYSTIC OVARIES

REACTIONS (2)
  - Bacterial vaginosis [Recovered/Resolved]
  - Nausea [Recovered/Resolved]
